FAERS Safety Report 17098395 (Version 1)
Quarter: 2019Q4

REPORT INFORMATION
  Report Type: Spontaneous
  Country: US (occurrence: US)
  Receive Date: 20191202
  Receipt Date: 20191202
  Transmission Date: 20200122
  Serious: No
  Sender: FDA-Public Use
  Company Number: US-PFIZER INC-2019511856

PATIENT
  Age: 53 Year
  Sex: Female

DRUGS (3)
  1. DOXEPIN [Concomitant]
     Active Substance: DOXEPIN
     Dosage: UNK
     Dates: start: 201807, end: 201901
  2. GABAPENTIN. [Suspect]
     Active Substance: GABAPENTIN
     Indication: PAIN
     Dosage: UNK
     Dates: start: 201807, end: 201901
  3. GABAPENTIN. [Suspect]
     Active Substance: GABAPENTIN
     Indication: ANXIETY

REACTIONS (2)
  - Drug ineffective for unapproved indication [Unknown]
  - Off label use [Unknown]

NARRATIVE: CASE EVENT DATE: 201807
